FAERS Safety Report 6409532 (Version 3)
Quarter: 2016Q1

REPORT INFORMATION
  Report Type: Spontaneous
  Country: TR (occurrence: TR)
  Receive Date: 20070910
  Receipt Date: 20160127
  Transmission Date: 20160526
  Serious: Yes (Other)
  Sender: FDA-Public Use
  Company Number: TR-BRISTOL-MYERS SQUIBB COMPANY-13900543

PATIENT
  Age: 26 Year
  Sex: Female
  Weight: 47 kg

DRUGS (1)
  1. FLUPHENAZINE DECANOATE. [Suspect]
     Active Substance: FLUPHENAZINE DECANOATE
     Indication: PRODUCT USED FOR UNKNOWN INDICATION
     Dosage: 25 MG, QD
     Route: 030
     Dates: start: 20070831, end: 20070902

REACTIONS (8)
  - Medication error [Unknown]
  - Seizure [Recovered/Resolved]
  - Dysarthria [Recovered/Resolved]
  - Arthralgia [Recovered/Resolved]
  - Drooling [Recovered/Resolved]
  - Hyperhidrosis [Recovered/Resolved]
  - Maternal exposure during pregnancy [Unknown]
  - Insomnia [Recovered/Resolved]

NARRATIVE: CASE EVENT DATE: 20070901
